FAERS Safety Report 14998293 (Version 2)
Quarter: 2018Q3

REPORT INFORMATION
  Report Type: Spontaneous
  Country: US (occurrence: US)
  Receive Date: 20180611
  Receipt Date: 20180801
  Transmission Date: 20181010
  Serious: Yes (Hospitalization)
  Sender: FDA-Public Use
  Company Number: US-VIFOR (INTERNATIONAL) INC.-VIT-2018-05535

PATIENT
  Sex: Male

DRUGS (14)
  1. SODIUM BICARBONATE. [Concomitant]
     Active Substance: SODIUM BICARBONATE
  2. LINEZOLID. [Concomitant]
     Active Substance: LINEZOLID
  3. MINOXIDIL. [Concomitant]
     Active Substance: MINOXIDIL
  4. FERROUS SULFATE. [Concomitant]
     Active Substance: FERROUS SULFATE
  5. VELTASSA [Suspect]
     Active Substance: PATIROMER
     Indication: HYPERKALAEMIA
     Route: 048
     Dates: start: 20180329
  6. NIFEDIPINE. [Concomitant]
     Active Substance: NIFEDIPINE
  7. LEVAQUIN [Concomitant]
     Active Substance: LEVOFLOXACIN
  8. ZANTAC [Concomitant]
     Active Substance: RANITIDINE HYDROCHLORIDE
  9. MEGESTROL ACETATE. [Concomitant]
     Active Substance: MEGESTROL ACETATE
  10. AVELOX [Concomitant]
     Active Substance: MOXIFLOXACIN HYDROCHLORIDE
  11. TRADJENTA [Concomitant]
     Active Substance: LINAGLIPTIN
  12. CARVEDILOL. [Concomitant]
     Active Substance: CARVEDILOL
  13. LASIX [Concomitant]
     Active Substance: FUROSEMIDE
  14. LISINOPRIL. [Concomitant]
     Active Substance: LISINOPRIL

REACTIONS (8)
  - Anaemia [Not Recovered/Not Resolved]
  - Inflammation [Unknown]
  - Peripheral swelling [Unknown]
  - Fluid retention [Not Recovered/Not Resolved]
  - Hypertension [Not Recovered/Not Resolved]
  - White blood cell disorder [Unknown]
  - Acidosis [Not Recovered/Not Resolved]
  - Blood glucose increased [Unknown]

NARRATIVE: CASE EVENT DATE: 2018
